FAERS Safety Report 5730832-9 (Version None)
Quarter: 2008Q2

REPORT INFORMATION
  Report Type: 
  Country: None (occurrence: None)
  Receive Date: 20080507
  Receipt Date: 20080425
  Transmission Date: 20081010
  Serious: Yes (Other)
  Sender: FDA-Public Use
  Company Number: TR-PFIZER INC-2008033148

PATIENT
  Sex: Male
  Weight: 62 kg

DRUGS (3)
  1. PREGABALIN [Suspect]
     Indication: NEURALGIA
     Route: 048
     Dates: start: 20080326, end: 20080405
  2. CANDESARTAN CILEXETIL [Concomitant]
     Dosage: DAILY DOSE:16MG
  3. ACETYLSALICYLIC ACID SRT [Concomitant]
     Dosage: DAILY DOSE:100MG

REACTIONS (3)
  - BLOOD UREA INCREASED [None]
  - FATIGUE [None]
  - HYPONATRAEMIA [None]
